FAERS Safety Report 11251660 (Version 1)
Quarter: 2015Q3

REPORT INFORMATION
  Report Type: Spontaneous
  Country: US (occurrence: US)
  Receive Date: 20150708
  Receipt Date: 20150708
  Transmission Date: 20151125
  Serious: No
  Sender: FDA-Public Use
  Company Number: US-ELI_LILLY_AND_COMPANY-US201205003318

PATIENT
  Age: 30 Year
  Sex: Female

DRUGS (2)
  1. ALCOHOL. [Concomitant]
     Active Substance: ALCOHOL
  2. PROZAC [Suspect]
     Active Substance: FLUOXETINE HYDROCHLORIDE
     Indication: BULIMIA NERVOSA
     Dosage: 60 MG, UNK

REACTIONS (3)
  - Exposure during pregnancy [Recovered/Resolved]
  - Alcohol poisoning [Unknown]
  - Alcohol interaction [Unknown]

NARRATIVE: CASE EVENT DATE: 201202
